FAERS Safety Report 14853364 (Version 1)
Quarter: 2018Q2

REPORT INFORMATION
  Report Type: Report from Study
  Country: IT (occurrence: IT)
  Receive Date: 20180507
  Receipt Date: 20180507
  Transmission Date: 20180711
  Serious: Yes (Hospitalization)
  Sender: FDA-Public Use
  Company Number: IT-PFIZER INC-2018181544

PATIENT
  Age: 48 Year

DRUGS (4)
  1. ZANTIPRES [Suspect]
     Active Substance: ZOFENOPRIL
     Dosage: 3.36 G, TOTAL
     Route: 048
     Dates: start: 20160404, end: 20160404
  2. OKI [Suspect]
     Active Substance: KETOPROFEN LYSINE
     Dosage: 2 DF, TOTAL
     Route: 048
     Dates: start: 20160404, end: 20160404
  3. TACHIPIRINA [Suspect]
     Active Substance: ACETAMINOPHEN
     Dosage: 8 DF, TOTAL
     Route: 048
     Dates: start: 20160404, end: 20160404
  4. NORVASC [Suspect]
     Active Substance: AMLODIPINE BESYLATE
     Dosage: 140 MG, TOTAL
     Dates: start: 20160404, end: 20160404

REACTIONS (3)
  - Intentional self-injury [Recovered/Resolved]
  - Sopor [Recovered/Resolved]
  - Intentional overdose [Recovered/Resolved]

NARRATIVE: CASE EVENT DATE: 20160404
